FAERS Safety Report 8119147-1 (Version None)
Quarter: 2012Q1

REPORT INFORMATION
  Report Type: 
  Country: None (occurrence: None)
  Receive Date: 20120207
  Receipt Date: 20120207
  Transmission Date: 20120608
  Serious: No
  Sender: FDA-Public Use
  Company Number: None

PATIENT
  Age: 68 Year
  Sex: Male
  Weight: 78.925 kg

DRUGS (1)
  1. LEVOFLOXACIN [Suspect]
     Indication: EAR INFECTION
     Dosage: 500 MG
     Route: 048
     Dates: start: 20120118, end: 20120125

REACTIONS (4)
  - TENDON PAIN [None]
  - MUSCULOSKELETAL PAIN [None]
  - ARTHRALGIA [None]
  - MYALGIA [None]
